FAERS Safety Report 7545721-7 (Version None)
Quarter: 2011Q2

REPORT INFORMATION
  Report Type: 
  Country: None (occurrence: None)
  Receive Date: 20110614
  Receipt Date: 20110607
  Transmission Date: 20111010
  Serious: Yes (Death, Hospitalization, Other)
  Sender: FDA-Public Use
  Company Number: US-AMGEN-USASP2011022841

PATIENT
  Age: 78 Year
  Sex: Female
  Weight: 73.923 kg

DRUGS (4)
  1. DECADRON [Concomitant]
  2. NPLATE [Suspect]
     Indication: IDIOPATHIC THROMBOCYTOPENIC PURPURA
     Dosage: 700 A?G, QWK
     Route: 058
     Dates: start: 20100501, end: 20110207
  3. NEXUM [Concomitant]
     Dosage: UNK UNK, QD
     Route: 048
  4. HYDROCHLOROTHIAZIDE [Concomitant]
     Dosage: 25 MG, QD
     Route: 048

REACTIONS (7)
  - VAGINAL HAEMORRHAGE [None]
  - HAEMORRHAGIC ANAEMIA [None]
  - THROMBOCYTOPENIA [None]
  - TACHYCARDIA [None]
  - DRUG INEFFECTIVE [None]
  - HAEMORRHAGIC STROKE [None]
  - PETECHIAE [None]
